FAERS Safety Report 6506003-5 (Version None)
Quarter: 2009Q4

REPORT INFORMATION
  Report Type: 
  Country: None (occurrence: None)
  Receive Date: 20091218
  Receipt Date: 20091210
  Transmission Date: 20100525
  Serious: Yes (Hospitalization)
  Sender: FDA-Public Use
  Company Number: CH-PFIZER INC-2009308151

PATIENT
  Age: 74 Year
  Sex: Female

DRUGS (4)
  1. SORTIS [Suspect]
     Indication: HYPERLIPIDAEMIA
     Dosage: 20 MG, 1X/DAY
     Route: 048
     Dates: start: 20040101, end: 20091126
  2. ACETYLSALICYLIC ACID [Suspect]
     Dosage: 100 MG, 1X/DAY
     Route: 048
     Dates: start: 20080101
  3. COVERSUM [Suspect]
     Indication: MYOCARDIAL ISCHAEMIA
     Dosage: 4 MG, 1X/DAY
     Route: 048
     Dates: start: 20090301
  4. BELOC ZOK [Concomitant]
     Indication: MYOCARDIAL ISCHAEMIA
     Dosage: 50 MG, 1X/DAY
     Route: 048
     Dates: start: 20090201

REACTIONS (1)
  - PANCREATITIS ACUTE [None]
